FAERS Safety Report 11982094 (Version 1)
Quarter: 2016Q1

REPORT INFORMATION
  Report Type: Spontaneous
  Country: CH (occurrence: CH)
  Receive Date: 20160201
  Receipt Date: 20160201
  Transmission Date: 20160526
  Serious: Yes (Other)
  Sender: FDA-Public Use
  Company Number: CH-AMGEN-CHESP2016010554

PATIENT
  Age: 54 Year
  Sex: Male
  Weight: 102 kg

DRUGS (8)
  1. REVLIMID [Concomitant]
     Active Substance: LENALIDOMIDE
     Dosage: 25 MG PER ONE DAY
     Route: 048
     Dates: start: 20151221
  2. KYPROLIS [Suspect]
     Active Substance: CARFILZOMIB
     Indication: PLASMA CELL MYELOMA
     Dosage: 45.7 MG, 1 AND 2 ON 22/DEC/2015
     Route: 042
     Dates: start: 20151221
  3. VALTREX [Concomitant]
     Active Substance: VALACYCLOVIR HYDROCHLORIDE
     Dosage: 500 MG 2 PER DAY
     Route: 048
     Dates: start: 201512
  4. DEXAMETHASONE. [Concomitant]
     Active Substance: DEXAMETHASONE
     Dosage: 40 MG, UNK
     Route: 048
     Dates: start: 20151221, end: 20160111
  5. LYRICA [Concomitant]
     Active Substance: PREGABALIN
     Dosage: 150 MG PER ONE DAY
     Route: 048
  6. MEPHANOL [Concomitant]
     Active Substance: ALLOPURINOL
     Dosage: 300 MG PER ONE DAY
     Route: 048
  7. ATACAND [Concomitant]
     Active Substance: CANDESARTAN CILEXETIL
     Dosage: 8 MG PER ONEDAY
     Route: 048
  8. ASPIRIN CARDIO [Concomitant]
     Active Substance: ASPIRIN
     Dosage: 100 MG, PER ONE DAY
     Route: 048

REACTIONS (1)
  - Hypersensitivity [Recovered/Resolved]

NARRATIVE: CASE EVENT DATE: 20160111
